FAERS Safety Report 16582105 (Version 5)
Quarter: 2020Q1

REPORT INFORMATION
  Report Type: Report from Study
  Country: KR (occurrence: KR)
  Receive Date: 20190717
  Receipt Date: 20200318
  Transmission Date: 20200409
  Serious: Yes (Death, Hospitalization, Other)
  Sender: FDA-Public Use
  Company Number: PHHY2019KR162836

PATIENT
  Age: 73 Year
  Sex: Male
  Weight: 52.7 kg

DRUGS (9)
  1. FLIVAS [Concomitant]
     Active Substance: NAFTOPIDIL
     Indication: BENIGN PROSTATIC HYPERPLASIA
     Dosage: 75 MG
     Route: 065
     Dates: start: 20150427, end: 20190630
  2. NEBISTOL [Concomitant]
     Indication: HYPERTENSION
     Dosage: 2.5 MG, UNK
     Route: 065
     Dates: start: 20150429, end: 20190703
  3. ENTRESTO [Suspect]
     Active Substance: SACUBITRIL\VALSARTAN
     Indication: CARDIAC FAILURE CHRONIC
     Dosage: 50 MG, BID
     Route: 065
     Dates: start: 20181113, end: 20190630
  4. ASPIRINE PROTECT [Concomitant]
     Active Substance: ASPIRIN
     Indication: PROPHYLAXIS
     Dosage: 100 MG, UNK
     Route: 065
     Dates: start: 20101005, end: 20190703
  5. LASIX [Concomitant]
     Active Substance: FUROSEMIDE
     Indication: CARDIAC FAILURE CHRONIC
     Dosage: 40 MG, UNK
     Route: 065
     Dates: start: 20101005, end: 20190703
  6. DIGOSIN [Concomitant]
     Active Substance: DIGOXIN
     Indication: IMPLANTABLE DEFIBRILLATOR INSERTION
     Dosage: 0.25 MG, UNK
     Route: 065
     Dates: start: 20140304, end: 20190703
  7. TRIOPAN [Concomitant]
     Indication: BENIGN PROSTATIC HYPERPLASIA
     Dosage: 100 MG
     Route: 065
     Dates: start: 20190427, end: 20190630
  8. CRESTOR [Concomitant]
     Active Substance: ROSUVASTATIN CALCIUM
     Indication: HYPERLIPIDAEMIA
     Dosage: 10 MG, UNK
     Route: 065
     Dates: start: 20101005, end: 20190703
  9. PROSCAR [Concomitant]
     Active Substance: FINASTERIDE
     Indication: BENIGN PROSTATIC HYPERPLASIA
     Dosage: 5 MG, UNK
     Route: 065
     Dates: start: 20151102, end: 20190630

REACTIONS (9)
  - Cardiomegaly [Fatal]
  - Acute kidney injury [Fatal]
  - Cardiac failure congestive [Fatal]
  - Cardiogenic shock [Fatal]
  - Anuria [Fatal]
  - Congestive cardiomyopathy [Fatal]
  - Dyspnoea [Fatal]
  - Pleural effusion [Fatal]
  - Systolic dysfunction [Fatal]

NARRATIVE: CASE EVENT DATE: 20190630
